FAERS Safety Report 8563733-1 (Version None)
Quarter: 2012Q3

REPORT INFORMATION
  Report Type: 
  Country: None (occurrence: None)
  Receive Date: 20120803
  Receipt Date: 20120730
  Transmission Date: 20120928
  Serious: No
  Sender: FDA-Public Use
  Company Number: US-BIOGENIDEC-2012BI028228

PATIENT
  Sex: Male

DRUGS (1)
  1. AVONEX [Suspect]
     Indication: MULTIPLE SCLEROSIS
     Route: 030
     Dates: start: 20070831, end: 20120718

REACTIONS (4)
  - HYPERTENSION [None]
  - BLOOD TRIGLYCERIDES INCREASED [None]
  - BLOOD TESTOSTERONE DECREASED [None]
  - FATIGUE [None]
